FAERS Safety Report 16976369 (Version 1)
Quarter: 2019Q4

REPORT INFORMATION
  Report Type: Spontaneous
  Country: CA (occurrence: CA)
  Receive Date: 20191030
  Receipt Date: 20191030
  Transmission Date: 20200122
  Serious: Yes (Life-Threatening, Hospitalization, Other)
  Sender: FDA-Public Use
  Company Number: CA-TEVA-2019-CA-1128083

PATIENT
  Age: 87 Year
  Sex: Female
  Weight: 68 kg

DRUGS (17)
  1. KCL SOLUTION A 20% [Concomitant]
  2. TAMIFLU [Concomitant]
     Active Substance: OSELTAMIVIR PHOSPHATE
  3. GRAVOL [Concomitant]
     Active Substance: DIMENHYDRINATE
  4. NOVORAPID -(10ML VIAL) [Concomitant]
  5. PROPOFOL. [Concomitant]
     Active Substance: PROPOFOL
  6. DONEPEZIL. [Suspect]
     Active Substance: DONEPEZIL
     Indication: DEMENTIA
     Dosage: 10 MILLIGRAM DAILY;
     Route: 048
  7. FUROSEMIDE INJ USP [Concomitant]
     Active Substance: FUROSEMIDE
  8. PIPERACILLIN/TAZOBACTAM [Concomitant]
     Active Substance: PIPERACILLIN SODIUM\TAZOBACTAM SODIUM
  9. LOVENOX [Concomitant]
     Active Substance: ENOXAPARIN SODIUM
  10. TYLENOL [Concomitant]
     Active Substance: ACETAMINOPHEN
  11. ZANTAC [Concomitant]
     Active Substance: RANITIDINE HYDROCHLORIDE
  12. FLOVENT [Concomitant]
     Active Substance: FLUTICASONE PROPIONATE
  13. HYDRALAZINE [Concomitant]
     Active Substance: HYDRALAZINE HYDROCHLORIDE
  14. LEVOPHED 1.0 MG/ML [Concomitant]
  15. PANTOLOC [Concomitant]
     Active Substance: PANTOPRAZOLE SODIUM
  16. DILAUDID [Concomitant]
     Active Substance: HYDROMORPHONE HYDROCHLORIDE
  17. IPRATROPIUM [Concomitant]
     Active Substance: IPRATROPIUM

REACTIONS (3)
  - Atrioventricular block complete [Recovered/Resolved]
  - Cardiac pacemaker insertion [Recovered/Resolved]
  - Resuscitation [Recovered/Resolved]
